FAERS Safety Report 8612367-9 (Version None)
Quarter: 2012Q3

REPORT INFORMATION
  Report Type: 
  Country: None (occurrence: None)
  Receive Date: 20120813
  Receipt Date: 20120813
  Transmission Date: 20120928
  Serious: Yes (Hospitalization)
  Sender: FDA-Public Use
  Company Number: None

PATIENT
  Sex: Female

DRUGS (15)
  1. DECITABINE [Suspect]
     Indication: MYELODYSPLASTIC SYNDROME
     Dosage: DECITABINE 0.2MG/KG3XWK
     Dates: start: 20120723
  2. DECITABINE [Suspect]
     Indication: ACUTE MYELOID LEUKAEMIA
     Dosage: DECITABINE 0.2MG/KG3XWK
     Dates: start: 20120723
  3. DECITABINE [Suspect]
     Indication: MYELODYSPLASTIC SYNDROME
     Dosage: DECITABINE 0.2MG/KG3XWK
     Dates: start: 20120726
  4. DECITABINE [Suspect]
     Indication: ACUTE MYELOID LEUKAEMIA
     Dosage: DECITABINE 0.2MG/KG3XWK
     Dates: start: 20120726
  5. DECITABINE [Suspect]
     Indication: MYELODYSPLASTIC SYNDROME
     Dosage: DECITABINE 0.2MG/KG3XWK
     Dates: start: 20120728
  6. DECITABINE [Suspect]
     Indication: ACUTE MYELOID LEUKAEMIA
     Dosage: DECITABINE 0.2MG/KG3XWK
     Dates: start: 20120728
  7. DECITABINE [Suspect]
     Indication: MYELODYSPLASTIC SYNDROME
     Dosage: DECITABINE 0.2MG/KG3XWK
     Dates: start: 20120721
  8. DECITABINE [Suspect]
     Indication: ACUTE MYELOID LEUKAEMIA
     Dosage: DECITABINE 0.2MG/KG3XWK
     Dates: start: 20120721
  9. LISINOPRIL [Concomitant]
  10. AMLODIPINE [Concomitant]
  11. PROMACTA [Concomitant]
  12. HYDREA [Concomitant]
  13. MARINOL [Concomitant]
  14. ENULOSE [Concomitant]
  15. ACYCLOVIR [Concomitant]

REACTIONS (5)
  - PROCEDURAL SITE REACTION [None]
  - PAIN [None]
  - FEBRILE NEUTROPENIA [None]
  - OEDEMA [None]
  - GINGIVAL BLEEDING [None]
